FAERS Safety Report 15184067 (Version 2)
Quarter: 2018Q3

REPORT INFORMATION
  Report Type: Spontaneous
  Country: FR (occurrence: FR)
  Receive Date: 20180723
  Receipt Date: 20180724
  Transmission Date: 20181010
  Serious: Yes (Death)
  Sender: FDA-Public Use
  Company Number: FR-PFIZER INC-2018292606

PATIENT
  Age: 66 Year
  Sex: Male

DRUGS (1)
  1. SUTENT [Suspect]
     Active Substance: SUNITINIB MALATE
     Indication: RENAL CANCER
     Dosage: 1 DF, CYCLIC
     Route: 048
     Dates: start: 20171111, end: 20180212

REACTIONS (4)
  - Neoplasm progression [Fatal]
  - Blood test abnormal [Fatal]
  - Pallor [Fatal]
  - Fatigue [Fatal]

NARRATIVE: CASE EVENT DATE: 20180124
